FAERS Safety Report 10457129 (Version 1)
Quarter: 2014Q3

REPORT INFORMATION
  Report Type: Spontaneous
  Country: ES (occurrence: ES)
  Receive Date: 20140916
  Receipt Date: 20140916
  Transmission Date: 20150326
  Serious: Yes (Other)
  Sender: FDA-Public Use
  Company Number: PHHY2014ES117142

PATIENT
  Age: 26 Year
  Sex: Male

DRUGS (2)
  1. CIPROFLOXACIN. [Suspect]
     Active Substance: CIPROFLOXACIN
     Indication: EVIDENCE BASED TREATMENT
  2. CIPROFLOXACIN. [Suspect]
     Active Substance: CIPROFLOXACIN
     Indication: GASTROENTERITIS
     Dosage: 400 MG, OVER 60 MIN
     Route: 042

REACTIONS (5)
  - Dysuria [Recovering/Resolving]
  - Urinary sediment present [Recovering/Resolving]
  - Transaminases increased [Recovering/Resolving]
  - Crystalluria [Recovering/Resolving]
  - Urine abnormality [Recovering/Resolving]
